FAERS Safety Report 9767208 (Version 1)
Quarter: 2013Q4

REPORT INFORMATION
  Report Type: Spontaneous
  Country: US (occurrence: US)
  Receive Date: 20131217
  Receipt Date: 20131217
  Transmission Date: 20140711
  Serious: No
  Sender: FDA-Public Use
  Company Number: US-GLAXOSMITHKLINE-A1043540A

PATIENT
  Sex: Male

DRUGS (8)
  1. VOTRIENT [Suspect]
     Indication: RENAL CANCER
     Dosage: 800MG PER DAY
     Route: 048
     Dates: start: 20130508
  2. VALIUM [Concomitant]
  3. LORAZEPAM [Concomitant]
  4. PROCHLORPERAZINE [Concomitant]
  5. BENAZEPRIL [Concomitant]
  6. SYNTHROID [Concomitant]
  7. METOPROLOL [Concomitant]
  8. DIOVAN [Concomitant]

REACTIONS (2)
  - Eyelid oedema [Unknown]
  - Swelling face [Unknown]
